FAERS Safety Report 10970961 (Version 5)
Quarter: 2015Q2

REPORT INFORMATION
  Report Type: Report from Study
  Country: US (occurrence: US)
  Receive Date: 20150331
  Receipt Date: 20150506
  Transmission Date: 20150821
  Serious: Yes (Hospitalization)
  Sender: FDA-Public Use
  Company Number: PHEH2015US005574

PATIENT
  Age: 26 Year
  Sex: Male
  Weight: 112.2 kg

DRUGS (4)
  1. VITAMIN D [Concomitant]
     Active Substance: CHOLECALCIFEROL
     Indication: PRODUCT USED FOR UNKNOWN INDICATION
     Route: 065
  2. GILENYA [Suspect]
     Active Substance: FINGOLIMOD HYDROCHLORIDE
     Indication: MULTIPLE SCLEROSIS
     Dosage: 0.5 MG, QD
     Route: 048
     Dates: start: 20150302, end: 20150302
  3. MULTI VITAMIN [Concomitant]
     Active Substance: VITAMINS
     Indication: PRODUCT USED FOR UNKNOWN INDICATION
     Route: 065
  4. ASA [Concomitant]
     Active Substance: ASPIRIN
     Indication: PRODUCT USED FOR UNKNOWN INDICATION
     Dosage: 81 MG, QD
     Route: 048

REACTIONS (16)
  - Choking [Unknown]
  - Product physical issue [Unknown]
  - Pneumonia [Unknown]
  - Multiple sclerosis relapse [Not Recovered/Not Resolved]
  - Blood pressure increased [Recovered/Resolved]
  - Body temperature increased [Unknown]
  - Breath sounds abnormal [Unknown]
  - Dyspnoea [Unknown]
  - Cough [Unknown]
  - Cough decreased [Unknown]
  - Deep vein thrombosis [Not Recovered/Not Resolved]
  - Respiratory tract congestion [Unknown]
  - Malaise [Unknown]
  - Pulmonary embolism [Not Recovered/Not Resolved]
  - Incontinence [Unknown]
  - Blood pressure increased [Unknown]

NARRATIVE: CASE EVENT DATE: 20150302
